FAERS Safety Report 18092198 (Version 1)
Quarter: 2020Q3

REPORT INFORMATION
  Report Type: Spontaneous
  Country: US (occurrence: US)
  Receive Date: 20200729
  Receipt Date: 20200729
  Transmission Date: 20201103
  Serious: No
  Sender: FDA-Public Use
  Company Number: None

PATIENT
  Age: 74 Year
  Sex: Female
  Weight: 113.4 kg

DRUGS (2)
  1. JAKAFI [Suspect]
     Active Substance: RUXOLITINIB
  2. JAKATI 10 MG [Concomitant]
     Dates: start: 20190430

REACTIONS (1)
  - Weight decreased [None]

NARRATIVE: CASE EVENT DATE: 20200729
